FAERS Safety Report 8789733 (Version 1)
Quarter: 2012Q4

REPORT INFORMATION
  Report Type: Spontaneous
  Country: US (occurrence: None)
  Receive Date: 20120911
  Receipt Date: 20120911
  Transmission Date: 20130627
  Serious: Yes (Death, Hospitalization, Disabling, Other)
  Sender: FDA-Public Use
  Company Number: None

PATIENT
  Sex: Female

DRUGS (1)
  1. ACCUTANE [Suspect]

REACTIONS (3)
  - Colitis ulcerative [None]
  - Crohn^s disease [None]
  - Neoplasm malignant [None]
